FAERS Safety Report 16330610 (Version 1)
Quarter: 2019Q2

REPORT INFORMATION
  Report Type: Spontaneous
  Country: US (occurrence: US)
  Receive Date: 20190517
  Receipt Date: 20190517
  Transmission Date: 20190711
  Serious: Yes (Death)
  Sender: FDA-Public Use
  Company Number: None

PATIENT
  Age: 63 Year
  Sex: Male
  Weight: 72.5 kg

DRUGS (1)
  1. KCENTRA [Suspect]
     Active Substance: COAGULATION FACTOR IX HUMAN\COAGULATION FACTOR VII HUMAN\COAGULATION FACTOR X HUMAN\PROTEIN C\PROTEIN S HUMAN\PROTHROMBIN
     Dosage: DOSE: 512 UNK-UNKNOWN?          OTHER FREQUENCY:ONCE;?
     Route: 041
     Dates: start: 20190306

REACTIONS (2)
  - Acute myocardial infarction [None]
  - Splenic haemorrhage [None]

NARRATIVE: CASE EVENT DATE: 20190307
